FAERS Safety Report 5711505-5 (Version None)
Quarter: 2008Q2

REPORT INFORMATION
  Report Type: 
  Country: None (occurrence: None)
  Receive Date: 20080418
  Receipt Date: 20080418
  Transmission Date: 20081010
  Serious: Yes (Death, Hospitalization)
  Sender: FDA-Public Use
  Company Number: None

PATIENT
  Age: 9 Month
  Sex: Male
  Weight: 7.28 kg

DRUGS (8)
  1. LAMIVUDINE [Suspect]
     Indication: HIV INFECTION
     Dosage: 30 MILLIGRAMS TWICE A DAY ORALLY
     Route: 048
     Dates: start: 20080128, end: 20080319
  2. AZT [Suspect]
     Indication: HIV INFECTION
     Dosage: 70 MILLIGRAMS TWICE A DAY ORALLY
     Route: 048
     Dates: start: 20080128, end: 20080319
  3. NEVIRAPINE [Suspect]
     Indication: HIV INFECTION
     Dosage: 60 MILLIGRAMS TWICE A DAY ORALLY
     Route: 048
     Dates: start: 20080128, end: 20080319
  4. COTRIMOXAZOLE [Concomitant]
  5. MULTI-VITAMIN [Concomitant]
  6. DAKATRIN [Concomitant]
  7. BETAMETHASONE [Concomitant]
  8. HYDROCORTISONE [Concomitant]

REACTIONS (24)
  - ACIDOSIS [None]
  - ALANINE AMINOTRANSFERASE INCREASED [None]
  - ASPARTATE AMINOTRANSFERASE INCREASED [None]
  - BILIRUBIN CONJUGATED INCREASED [None]
  - C-REACTIVE PROTEIN INCREASED [None]
  - ENCEPHALOPATHY [None]
  - GAMMA-GLUTAMYLTRANSFERASE INCREASED [None]
  - GENERAL PHYSICAL HEALTH DETERIORATION [None]
  - HAEMOGLOBIN DECREASED [None]
  - HYPERREFLEXIA [None]
  - HYPERTONIA [None]
  - IMMUNE RECONSTITUTION SYNDROME [None]
  - IRRITABILITY [None]
  - LETHARGY [None]
  - LYMPHOCYTE COUNT DECREASED [None]
  - MYCOBACTERIUM FORTUITUM INFECTION [None]
  - NERVOUS SYSTEM DISORDER [None]
  - PNEUMONIA [None]
  - PYREXIA [None]
  - RESPIRATORY DISTRESS [None]
  - TACHYPNOEA [None]
  - TUBERCULOSIS [None]
  - WEIGHT DECREASED [None]
  - WHEEZING [None]
